FAERS Safety Report 5379884-9 (Version None)
Quarter: 2007Q3

REPORT INFORMATION
  Report Type: 
  Country: None (occurrence: None)
  Receive Date: 20070706
  Receipt Date: 20070703
  Transmission Date: 20080115
  Serious: Yes (Other)
  Sender: FDA-Public Use
  Company Number: US-BRISTOL-MYERS SQUIBB COMPANY-13833249

PATIENT
  Age: 79 Year
  Sex: Male
  Weight: 83 kg

DRUGS (3)
  1. IXABEPILONE [Suspect]
     Indication: PROSTATE CANCER
     Route: 042
     Dates: start: 20070214, end: 20070214
  2. MITOXANTRONE [Suspect]
     Indication: PROSTATE CANCER
     Route: 042
     Dates: start: 20070214, end: 20070214
  3. PREDNISONE TAB [Suspect]
     Indication: PROSTATE CANCER
     Route: 048
     Dates: start: 20070214, end: 20070306

REACTIONS (2)
  - LEUKOPENIA [None]
  - NEUTROPENIA [None]
